FAERS Safety Report 4966557-7 (Version None)
Quarter: 2006Q2

REPORT INFORMATION
  Report Type: 
  Country: None (occurrence: None)
  Receive Date: 20060407
  Receipt Date: 20060328
  Transmission Date: 20061013
  Serious: Yes (Other)
  Sender: FDA-Public Use
  Company Number: KR-JNJFOC-20060305113

PATIENT
  Age: 28 Year
  Sex: Female

DRUGS (2)
  1. ULTRACET [Suspect]
     Route: 048
  2. ULTRACET [Suspect]
     Route: 048

REACTIONS (2)
  - DYSPNOEA [None]
  - MIGRAINE WITHOUT AURA [None]
